FAERS Safety Report 7918657-7 (Version None)
Quarter: 2011Q4

REPORT INFORMATION
  Report Type: 
  Country: None (occurrence: None)
  Receive Date: 20111116
  Receipt Date: 20111111
  Transmission Date: 20120403
  Serious: Yes (Hospitalization)
  Sender: FDA-Public Use
  Company Number: US-B.I. PHARMACEUTICALS,INC./RIDGEFIELD-2011-BP-26073BP

PATIENT
  Sex: Male

DRUGS (8)
  1. MULTI-VITAMIN [Concomitant]
     Indication: SUPPLEMENTATION THERAPY
  2. FISH OIL [Concomitant]
     Indication: SUPPLEMENTATION THERAPY
  3. PRADAXA [Suspect]
     Indication: ATRIAL FIBRILLATION
     Dosage: 300 MG
     Route: 048
  4. SINEMET [Concomitant]
     Indication: PARKINSON'S DISEASE
  5. TRAZODONE HCL [Concomitant]
     Indication: INSOMNIA
     Dosage: 50 MG
     Route: 048
  6. CALCIUM [Concomitant]
     Indication: SUPPLEMENTATION THERAPY
  7. B3 VITAMIN [Concomitant]
     Indication: SUPPLEMENTATION THERAPY
  8. STALEVO 100 [Concomitant]
     Indication: PARKINSON'S DISEASE
     Dosage: 800 MG
     Route: 048

REACTIONS (5)
  - TRANSIENT ISCHAEMIC ATTACK [None]
  - LACERATION [None]
  - SUTURE INSERTION [None]
  - DEPRESSION [None]
  - FALL [None]
